FAERS Safety Report 20331085 (Version 1)
Quarter: 2022Q1

REPORT INFORMATION
  Report Type: Spontaneous
  Country: US (occurrence: None)
  Receive Date: 20220112
  Receipt Date: 20220112
  Transmission Date: 20220423
  Serious: No
  Sender: FDA-Public Use
  Company Number: None

PATIENT
  Age: 30 Year
  Sex: Male

DRUGS (1)
  1. ENBREL [Suspect]
     Active Substance: ETANERCEPT
     Indication: Ankylosing spondylitis
     Dosage: OTHER FREQUENCY : EVERY7DAYS;?
     Route: 058
     Dates: start: 20210320

REACTIONS (1)
  - Loss of therapeutic response [None]

NARRATIVE: CASE EVENT DATE: 20211130
